FAERS Safety Report 24174869 (Version 2)
Quarter: 2024Q3

REPORT INFORMATION
  Report Type: Spontaneous
  Country: CN (occurrence: CN)
  Receive Date: 20240805
  Receipt Date: 20240813
  Transmission Date: 20241017
  Serious: Yes (Life-Threatening)
  Sender: NOVARTIS
  Company Number: CN-002147023-NVSC2024CN158190

PATIENT
  Age: 74 Year
  Sex: Female

DRUGS (1)
  1. AFINITOR [Suspect]
     Active Substance: EVEROLIMUS
     Indication: Neoplasm
     Dosage: 5 MG, QOD
     Route: 048
     Dates: start: 20240721, end: 20240727

REACTIONS (3)
  - Myelosuppression [Recovering/Resolving]
  - Platelet count decreased [Recovering/Resolving]
  - Facial wasting [Unknown]

NARRATIVE: CASE EVENT DATE: 20240724
